FAERS Safety Report 15148345 (Version 29)
Quarter: 2024Q4

REPORT INFORMATION
  Report Type: Spontaneous
  Country: US (occurrence: US)
  Receive Date: 20180716
  Receipt Date: 20241227
  Transmission Date: 20250114
  Serious: Yes (Other)
  Sender: PFIZER
  Company Number: US-PFIZER INC-2018284082

PATIENT
  Age: 72 Year
  Sex: Female

DRUGS (9)
  1. PREMARIN [Suspect]
     Active Substance: ESTROGENS, CONJUGATED
     Indication: Menopausal symptoms
     Dosage: 0.625 MG
  2. PREMARIN [Suspect]
     Active Substance: ESTROGENS, CONJUGATED
     Dosage: 2 DF, DAILY
     Route: 048
  3. PREMARIN [Suspect]
     Active Substance: ESTROGENS, CONJUGATED
     Dosage: 2 TABLETS OF 0.625 MG IN THE MORNING
  4. PREMARIN [Suspect]
     Active Substance: ESTROGENS, CONJUGATED
     Dosage: DAILY FOR 21 DAYS AND THEN 7 DAYS OFF
     Route: 048
  5. PREMARIN [Suspect]
     Active Substance: ESTROGENS, CONJUGATED
     Dosage: 2 TABLETS (1.25 MG TOTAL), TWO TIMES A DAY
     Route: 048
     Dates: start: 20220103
  6. PREMARIN [Suspect]
     Active Substance: ESTROGENS, CONJUGATED
     Dosage: 2 TABLETS (1.25 MG TOTAL), TWO TIMES A DAY
     Route: 048
     Dates: start: 20220317
  7. PREMARIN [Suspect]
     Active Substance: ESTROGENS, CONJUGATED
     Dosage: 1.25 MG TOTAL ONCE A DAY
     Route: 048
  8. PREMARIN [Suspect]
     Active Substance: ESTROGENS, CONJUGATED
     Dosage: TAKE 2 TABLETS/0.625 FOR A TOTAL OF 1.25 DAILY
     Route: 048
  9. PREMARIN [Suspect]
     Active Substance: ESTROGENS, CONJUGATED
     Dosage: UNK

REACTIONS (28)
  - Myocardial infarction [Unknown]
  - Colon cancer [Recovered/Resolved]
  - Rectal cancer [Recovered/Resolved]
  - Skin cancer [Unknown]
  - Limb injury [Unknown]
  - Cardiac disorder [Unknown]
  - Colitis ulcerative [Unknown]
  - Mole excision [Unknown]
  - Micrographic skin surgery [Unknown]
  - Asthenia [Unknown]
  - Tremor [Unknown]
  - Arthropathy [Unknown]
  - Body height decreased [Unknown]
  - Bronchitis [Recovered/Resolved]
  - Illness [Unknown]
  - Fatigue [Unknown]
  - Stress [Unknown]
  - Mental disorder [Unknown]
  - Movement disorder [Unknown]
  - Malaise [Unknown]
  - Chest pain [Unknown]
  - Hypoacusis [Unknown]
  - Back pain [Unknown]
  - Impaired driving ability [Unknown]
  - Off label use [Unknown]
  - Product prescribing error [Unknown]
  - Intentional product use issue [Unknown]
  - Product dose confusion [Unknown]

NARRATIVE: CASE EVENT DATE: 20100101
